FAERS Safety Report 12901831 (Version 2)
Quarter: 2016Q4

REPORT INFORMATION
  Report Type: Spontaneous
  Country: FI (occurrence: FI)
  Receive Date: 20161102
  Receipt Date: 20161104
  Transmission Date: 20170207
  Serious: Yes (Life-Threatening)
  Sender: FDA-Public Use
  Company Number: FI-UCBSA-2016041504

PATIENT
  Age: 70 Year
  Sex: Female

DRUGS (5)
  1. XYZAL [Suspect]
     Active Substance: LEVOCETIRIZINE DIHYDROCHLORIDE
     Indication: HYPERSENSITIVITY
     Dosage: UNK
  2. FLECAINIDE ACETATE. [Concomitant]
     Active Substance: FLECAINIDE ACETATE
     Indication: ARRHYTHMIA
     Dosage: 100 MG, ONCE DAILY (QD), STRENGTH 100 MG
     Route: 048
     Dates: start: 20160919
  3. BISOPROLOL RATIOPHARM [Concomitant]
     Active Substance: BISOPROLOL
     Indication: PROPHYLAXIS
     Dosage: 7.5 MG, ONCE DAILY (QD); STRENGTH: 5 MG
     Route: 048
     Dates: start: 20160726
  4. XYZAL [Suspect]
     Active Substance: LEVOCETIRIZINE DIHYDROCHLORIDE
     Dosage: 5 MG, ONCE DAILY (QD)
     Route: 048
     Dates: start: 20161006, end: 20161008
  5. XARELTO [Concomitant]
     Active Substance: RIVAROXABAN
     Indication: ATRIAL FIBRILLATION
     Dosage: 20 MG, ONCE DAILY (QD), STRENGTH 20 MG
     Route: 048
     Dates: start: 20160726

REACTIONS (3)
  - Asthenia [Recovered/Resolved]
  - Loss of consciousness [Recovered/Resolved]
  - Incontinence [Recovered/Resolved]

NARRATIVE: CASE EVENT DATE: 20161009
